FAERS Safety Report 17995875 (Version 1)
Quarter: 2020Q3

REPORT INFORMATION
  Report Type: Spontaneous
  Country: US (occurrence: US)
  Receive Date: 20200708
  Receipt Date: 20200708
  Transmission Date: 20201103
  Serious: Yes (Other)
  Sender: FDA-Public Use
  Company Number: US-PFIZER INC-2019021926

PATIENT
  Age: 75 Year
  Sex: Female

DRUGS (1)
  1. EFFEXOR XR [Suspect]
     Active Substance: VENLAFAXINE HYDROCHLORIDE
     Dosage: 300 MG, DAILY [TAKE 2 CAPSULES (300MG TOTAL) BY MOUTH DAILY]
     Route: 048

REACTIONS (3)
  - Stress [Unknown]
  - Angina pectoris [Unknown]
  - Prescribed overdose [Unknown]
